FAERS Safety Report 4591038-2 (Version None)
Quarter: 2005Q1

REPORT INFORMATION
  Report Type: 
  Country: None (occurrence: None)
  Receive Date: 20050222
  Receipt Date: 20050222
  Transmission Date: 20050727
  Serious: Yes (Hospitalization)
  Sender: FDA-Public Use
  Company Number: None

PATIENT
  Age: 74 Year
  Sex: Male
  Weight: 80 kg

DRUGS (9)
  1. IRESSA [Suspect]
     Indication: NON-SMALL CELL LUNG CANCER
     Dosage: 250 MG QD ORAL
     Route: 048
     Dates: start: 20050128, end: 20050209
  2. TAXOTERE [Suspect]
     Indication: NON-SMALL CELL LUNG CANCER
     Dosage: 75MG/M2  Q21DAYS INTRAVENOUS
     Route: 042
     Dates: start: 20050128, end: 20050221
  3. DEXAMETHASONE [Concomitant]
  4. COMBIVENT [Concomitant]
  5. ISOSORBIDE [Concomitant]
  6. LASIX [Concomitant]
  7. POTASSIUM CHLORIDE [Concomitant]
  8. NORVASC [Concomitant]
  9. ATENOLOL [Concomitant]

REACTIONS (4)
  - COUGH [None]
  - LUNG INFILTRATION [None]
  - PYREXIA [None]
  - THERAPY NON-RESPONDER [None]
